FAERS Safety Report 8747367 (Version 3)
Quarter: 2012Q4

REPORT INFORMATION
  Report Type: Report from Study
  Country: US (occurrence: US)
  Receive Date: 20120827
  Receipt Date: 20121017
  Transmission Date: 20130627
  Serious: Yes (Death, Life-Threatening, Hospitalization)
  Sender: FDA-Public Use
  Company Number: US-CELGENEUS-163-AB007-12082205

PATIENT
  Age: 73 Year
  Sex: Female
  Weight: 72.96 kg

DRUGS (2)
  1. ABI-007 [Suspect]
     Indication: PANCREATIC CANCER METASTATIC
     Dosage: 125 milligram/sq. meter
     Route: 041
     Dates: start: 20120328, end: 20120404
  2. GEMCITABINE [Suspect]
     Indication: PANCREATIC CANCER METASTATIC
     Dosage: 1000 milligram/sq. meter
     Route: 041
     Dates: start: 20120328, end: 20120404

REACTIONS (4)
  - Septic shock [Fatal]
  - Neutropenia [Not Recovered/Not Resolved]
  - Leukopenia [Not Recovered/Not Resolved]
  - Renal failure acute [Not Recovered/Not Resolved]
